FAERS Safety Report 5509884-7 (Version None)
Quarter: 2007Q4

REPORT INFORMATION
  Report Type: 
  Country: None (occurrence: None)
  Receive Date: 20071108
  Receipt Date: 20071026
  Transmission Date: 20080405
  Serious: Yes (Death, Hospitalization, Other)
  Sender: FDA-Public Use
  Company Number: US-PURDUE-USA_2007_0029479

PATIENT
  Age: 46 Year
  Sex: Male
  Weight: 119 kg

DRUGS (20)
  1. OXYCONTIN [Suspect]
     Indication: BACK PAIN
     Dosage: 10 MG, BID
     Dates: start: 20000808, end: 20050628
  2. TORADOL [Concomitant]
  3. BIAXIN [Concomitant]
  4. PAXIL [Concomitant]
  5. NAPROXEN [Concomitant]
  6. VITAMIN B-12 [Concomitant]
  7. KETOPROFEN [Concomitant]
  8. EFFEXOR [Concomitant]
  9. FLEXERIL [Concomitant]
  10. CLINORIL [Concomitant]
  11. VALIUM [Concomitant]
  12. DEPO-MEDROL [Concomitant]
  13. LEXAPRO [Concomitant]
  14. CLONOPIN [Concomitant]
  15. EXTRA STRENGHT TYLENOL PM [Concomitant]
  16. MAXZIDE [Concomitant]
  17. WELLBUTRIN [Concomitant]
  18. ZANAFLEX [Concomitant]
  19. SIMVASTATIN [Concomitant]
  20. ANTIBIOTICS [Concomitant]

REACTIONS (42)
  - ACCIDENT AT WORK [None]
  - ANGER [None]
  - ANOREXIA [None]
  - BACK INJURY [None]
  - BACK PAIN [None]
  - BREAST TENDERNESS [None]
  - CHILLS [None]
  - COMPLETED SUICIDE [None]
  - CONFUSIONAL STATE [None]
  - CONTUSION [None]
  - COUGH [None]
  - DENTAL DISCOMFORT [None]
  - DEPRESSION [None]
  - DEPRESSION SUICIDAL [None]
  - DRUG DEPENDENCE [None]
  - DRUG EFFECT DECREASED [None]
  - DRUG TOLERANCE INCREASED [None]
  - EAR PAIN [None]
  - GASTROOESOPHAGEAL REFLUX DISEASE [None]
  - GUN SHOT WOUND [None]
  - HYPERHIDROSIS [None]
  - HYPOAESTHESIA [None]
  - INADEQUATE ANALGESIA [None]
  - INCORRECT DOSE ADMINISTERED [None]
  - INFLUENZA LIKE ILLNESS [None]
  - INSOMNIA [None]
  - LETHARGY [None]
  - MEMORY IMPAIRMENT [None]
  - MUSCLE SPASMS [None]
  - NIPPLE PAIN [None]
  - OVERDOSE [None]
  - PAIN [None]
  - RADICULAR PAIN [None]
  - RHINORRHOEA [None]
  - SINUSITIS [None]
  - SUICIDE ATTEMPT [None]
  - SYNOVIAL CYST [None]
  - TENDONITIS [None]
  - TOOTH ABSCESS [None]
  - UPPER RESPIRATORY TRACT CONGESTION [None]
  - WHEEZING [None]
  - WITHDRAWAL SYNDROME [None]
